FAERS Safety Report 7366016-0 (Version None)
Quarter: 2011Q1

REPORT INFORMATION
  Report Type: 
  Country: None (occurrence: None)
  Receive Date: 20110322
  Receipt Date: 20100921
  Transmission Date: 20110831
  Serious: Yes (Other)
  Sender: FDA-Public Use
  Company Number: US-BAYER-201022007NA

PATIENT
  Sex: Female
  Weight: 45.351 kg

DRUGS (7)
  1. OCELLA [Suspect]
     Indication: MENSTRUAL CYCLE MANAGEMENT
     Dosage: UNK
     Route: 048
     Dates: start: 20040201, end: 20080731
  2. PREDNISONE [Concomitant]
     Indication: COLITIS
     Dosage: UNK
     Dates: start: 20050101
  3. MESALAMINE [Concomitant]
     Indication: COLITIS
     Dosage: UNK
     Dates: start: 20080601
  4. YAZ [Suspect]
     Indication: MENSTRUAL CYCLE MANAGEMENT
     Dosage: UNK
     Route: 048
     Dates: start: 20040201, end: 20080731
  5. LIALDA [Concomitant]
  6. YASMIN [Suspect]
     Indication: MENSTRUAL CYCLE MANAGEMENT
     Dosage: UNK
     Route: 048
     Dates: start: 20040201, end: 20080731
  7. ALEVE [Concomitant]
     Indication: PAIN
     Dosage: UNK
     Dates: start: 20080831

REACTIONS (1)
  - PULMONARY EMBOLISM [None]
